FAERS Safety Report 4365440-8 (Version None)
Quarter: 2004Q2

REPORT INFORMATION
  Report Type: 
  Country: None (occurrence: None)
  Receive Date: 20040520
  Receipt Date: 20040513
  Transmission Date: 20050107
  Serious: Yes (Hospitalization, Disabling)
  Sender: FDA-Public Use
  Company Number: 2004UW02786

PATIENT
  Age: 48 Year
  Sex: Female
  Weight: 72.5755 kg

DRUGS (1)
  1. DIPRIVAN [Suspect]
     Indication: SEDATION
     Dates: start: 20031228, end: 20040101

REACTIONS (16)
  - AMNESIA [None]
  - ASTHENIA [None]
  - BONE PAIN [None]
  - BRAIN DEATH [None]
  - CEREBRAL INFARCTION [None]
  - DEEP VEIN THROMBOSIS [None]
  - DEPRESSED LEVEL OF CONSCIOUSNESS [None]
  - DISORIENTATION [None]
  - DISTURBANCE IN ATTENTION [None]
  - DRUG HYPERSENSITIVITY [None]
  - ENCEPHALOPATHY [None]
  - MEDICATION ERROR [None]
  - MYALGIA [None]
  - SEDATION [None]
  - SEPSIS [None]
  - VISUAL ACUITY REDUCED [None]
